FAERS Safety Report 8915352 (Version 1)
Quarter: 2012Q4

REPORT INFORMATION
  Report Type: 
  Country: US (occurrence: US)
  Receive Date: 20121119
  Receipt Date: 20121119
  Transmission Date: 20130627
  Serious: No
  Sender: FDA-Public Use
  Company Number: US-PFIZER INC-2012284299

PATIENT
  Age: 61 Year
  Sex: Female
  Weight: 101.59 kg

DRUGS (5)
  1. PRISTIQ [Suspect]
     Indication: DEPRESSION
     Dosage: 100 mg, 1x/day
     Route: 048
     Dates: end: 20121111
  2. ABILIFY [Concomitant]
     Dosage: UNK
  3. LAMOTRIGINE [Concomitant]
     Dosage: UNK
  4. HYDROCHLOROTHIAZIDE [Concomitant]
     Indication: BLOOD PRESSURE HIGH
     Dosage: 25 mg, 1x/day
  5. LISINOPRIL [Concomitant]
     Indication: BLOOD PRESSURE HIGH
     Dosage: 20 mg, UNK

REACTIONS (3)
  - Vitamin D decreased [Unknown]
  - Fatigue [Unknown]
  - Feeling abnormal [Not Recovered/Not Resolved]
